FAERS Safety Report 6656735-3 (Version None)
Quarter: 2010Q1

REPORT INFORMATION
  Report Type: 
  Country: None (occurrence: None)
  Receive Date: 20100329
  Receipt Date: 20100205
  Transmission Date: 20100710
  Serious: No
  Sender: FDA-Public Use
  Company Number: US-BAUSCH-2010BL000778

PATIENT
  Age: 42 Year
  Sex: Female

DRUGS (1)
  1. POLYMYXIN B SULFATES AND TRIMETHOPRIM SULFATE [Suspect]
     Indication: CONJUNCTIVITIS INFECTIVE
     Route: 047
     Dates: start: 20100122, end: 20100128

REACTIONS (1)
  - DRUG INEFFECTIVE [None]
